FAERS Safety Report 8548488-9 (Version None)
Quarter: 2012Q2

REPORT INFORMATION
  Report Type: 
  Country: None (occurrence: None)
  Receive Date: 20120416
  Receipt Date: 20110303
  Transmission Date: 20120825
  Serious: Yes (Hospitalization, Other)
  Sender: FDA-Public Use
  Company Number: PHHY2011US18633

PATIENT
  Age: 97 Year
  Sex: Male

DRUGS (1)
  1. DIOVAN [Suspect]
     Dosage: 160 MG, QD, 80 MG

REACTIONS (2)
  - MUSCULAR WEAKNESS [None]
  - BLOOD POTASSIUM INCREASED [None]
